FAERS Safety Report 8964977 (Version 1)
Quarter: 2012Q4

REPORT INFORMATION
  Report Type: 
  Country: CA (occurrence: CA)
  Receive Date: 20121213
  Receipt Date: 20121213
  Transmission Date: 20130627
  Serious: Yes (Other)
  Sender: FDA-Public Use
  Company Number: CA-ELI_LILLY_AND_COMPANY-CA201212001021

PATIENT
  Age: 73 Year
  Sex: Female
  Weight: 33.11 kg

DRUGS (5)
  1. FORTEO [Suspect]
     Indication: OSTEOPOROSIS
     Dosage: 20 ug, qd
     Route: 058
     Dates: start: 20111022
  2. CLONAZEPAM [Concomitant]
     Dosage: 0.5 mg, prn
     Route: 065
  3. ASA [Concomitant]
     Dosage: UNK, unknown
     Route: 065
  4. CALTRATE WITH VITAMIN D [Concomitant]
     Dosage: UNK, unknown
     Route: 065
  5. VITAMIN D [Concomitant]
     Dosage: 1.000 IU, unknown
     Route: 065

REACTIONS (1)
  - Renal haemorrhage [Not Recovered/Not Resolved]
